FAERS Safety Report 5909238-5 (Version None)
Quarter: 2008Q4

REPORT INFORMATION
  Report Type: 
  Country: None (occurrence: None)
  Receive Date: 20081006
  Receipt Date: 20081001
  Transmission Date: 20090506
  Serious: Yes (Death)
  Sender: FDA-Public Use
  Company Number: PHHY2008JP23274

PATIENT
  Age: 72 Year
  Sex: Male

DRUGS (5)
  1. CYCLOSPORINE [Suspect]
     Indication: HEPATITIS B
  2. PREDNISOLONE [Concomitant]
  3. VINCRISTINE [Concomitant]
  4. RITUXIMAB [Concomitant]
  5. LAMIVUDINE [Concomitant]

REACTIONS (1)
  - PNEUMOCYSTIS JIROVECI PNEUMONIA [None]
